FAERS Safety Report 5556336-4 (Version None)
Quarter: 2007Q4

REPORT INFORMATION
  Report Type: 
  Country: None (occurrence: None)
  Receive Date: 20071211
  Receipt Date: 20071119
  Transmission Date: 20080405
  Serious: Yes (Life-Threatening)
  Sender: FDA-Public Use
  Company Number: 07H-163-0313278-00

PATIENT
  Age: 2 Month

DRUGS (2)
  1. SODIUM CHLORIDE 0.9% IN STERILE PLASTIC CONTAINER [Suspect]
  2. SODIUM CHLORIDE [Suspect]

REACTIONS (2)
  - BRADYCARDIA [None]
  - CARDIO-RESPIRATORY ARREST [None]
